FAERS Safety Report 16457725 (Version 1)
Quarter: 2019Q2

REPORT INFORMATION
  Report Type: Spontaneous
  Country: US (occurrence: US)
  Receive Date: 20190510
  Receipt Date: 20190510
  Transmission Date: 20190711
  Serious: No
  Sender: FDA-Public Use
  Company Number: None

PATIENT
  Age: 53 Year
  Sex: Female

DRUGS (1)
  1. ENBREL [Suspect]
     Active Substance: ETANERCEPT
     Dates: start: 201804

REACTIONS (5)
  - Pain [None]
  - Joint stiffness [None]
  - Arthralgia [None]
  - Therapy cessation [None]
  - Sick relative [None]

NARRATIVE: CASE EVENT DATE: 20190419
